FAERS Safety Report 20533013 (Version 1)
Quarter: 2022Q1

REPORT INFORMATION
  Report Type: Spontaneous
  Country: US (occurrence: US)
  Receive Date: 20220301
  Receipt Date: 20220301
  Transmission Date: 20220423
  Serious: No
  Sender: FDA-Public Use
  Company Number: US-BAUSCH-BL-2022-005065

PATIENT
  Age: 49 Year
  Sex: Male

DRUGS (2)
  1. WELLBUTRIN XL [Suspect]
     Active Substance: BUPROPION HYDROCHLORIDE
     Indication: Attention deficit hyperactivity disorder
     Route: 048
  2. WELLBUTRIN XL [Suspect]
     Active Substance: BUPROPION HYDROCHLORIDE
     Indication: Depression

REACTIONS (6)
  - Agitation [Unknown]
  - Aggression [Unknown]
  - Irritability [Unknown]
  - Disturbance in attention [Unknown]
  - Therapeutic product effect decreased [Unknown]
  - Product counterfeit [Unknown]

NARRATIVE: CASE EVENT DATE: 20220217
